FAERS Safety Report 4285890-8 (Version None)
Quarter: 2004Q1

REPORT INFORMATION
  Report Type: 
  Country: None (occurrence: None)
  Receive Date: 20040203
  Receipt Date: 20040128
  Transmission Date: 20041129
  Serious: Yes (Hospitalization)
  Sender: FDA-Public Use
  Company Number: STA-AE-04-MTX-031

PATIENT
  Age: 76 Year

DRUGS (8)
  1. RHEUMATREX [Suspect]
     Indication: RHEUMATOID ARTHRITIS
     Dosage: ORAL
     Route: 048
     Dates: start: 20020109, end: 20020730
  2. ETODOLAC [Concomitant]
  3. NORVASC [Concomitant]
  4. PREDNISOLONE [Concomitant]
  5. PRAVASTATIN [Concomitant]
  6. PERSANTINE [Concomitant]
  7. RANITIDINE HCL [Concomitant]
  8. SELBEX (TEPRENONE) [Concomitant]

REACTIONS (3)
  - ANOREXIA [None]
  - PRODUCTIVE COUGH [None]
  - WHITE BLOOD CELL COUNT DECREASED [None]
